FAERS Safety Report 8474560-8 (Version None)
Quarter: 2012Q2

REPORT INFORMATION
  Report Type: 
  Country: None (occurrence: None)
  Receive Date: 20120628
  Receipt Date: 20120620
  Transmission Date: 20120825
  Serious: Yes (Hospitalization)
  Sender: FDA-Public Use
  Company Number: US-BAYER-200918859NA

PATIENT
  Age: 42 Year
  Sex: Female
  Weight: 78.182 kg

DRUGS (9)
  1. METFORMIN HCL [Concomitant]
  2. IMMUNOSUPPRESSIVE AGENTS [Concomitant]
     Indication: PSORIASIS
  3. YAZ [Suspect]
     Indication: ENDOMETRIOSIS
     Route: 048
     Dates: start: 20090101
  4. YAZ [Suspect]
     Indication: ACNE
  5. WELLBUTRIN [Concomitant]
  6. YAZ [Suspect]
     Indication: POLYCYSTIC OVARIES
  7. YASMIN [Suspect]
     Indication: PRODUCT USED FOR UNKNOWN INDICATION
  8. YASMIN [Suspect]
     Indication: POLYCYSTIC OVARIES
  9. HUMIRA [Concomitant]

REACTIONS (3)
  - DEEP VEIN THROMBOSIS [None]
  - VAGINAL HAEMORRHAGE [None]
  - ALOPECIA [None]
